FAERS Safety Report 5270360-0 (Version None)
Quarter: 2007Q1

REPORT INFORMATION
  Report Type: 
  Country: None (occurrence: None)
  Receive Date: 20070320
  Receipt Date: 20070309
  Transmission Date: 20070707
  Serious: Yes (Other)
  Sender: FDA-Public Use
  Company Number: JP-PFIZER INC-2007013214

PATIENT
  Age: 57 Year
  Sex: Female

DRUGS (6)
  1. NORVASC [Suspect]
     Indication: ESSENTIAL HYPERTENSION
     Dosage: DAILY DOSE:5MG
     Route: 048
     Dates: start: 20061101, end: 20070101
  2. RENIVACE [Suspect]
     Indication: ESSENTIAL HYPERTENSION
     Dosage: DAILY DOSE:10MG
     Route: 048
     Dates: start: 20050101, end: 20070101
  3. BEHYD-R. A [Concomitant]
     Route: 048
  4. COMELIAN [Concomitant]
     Route: 048
  5. NEUQUINON [Concomitant]
     Route: 048
  6. OTHER NERVOUS SYSTEM DRUGS [Concomitant]

REACTIONS (2)
  - BLOOD PRESSURE INADEQUATELY CONTROLLED [None]
  - BRADYCARDIA [None]
